FAERS Safety Report 12976788 (Version 2)
Quarter: 2016Q4

REPORT INFORMATION
  Report Type: Report from Study
  Country: BR (occurrence: BR)
  Receive Date: 20161128
  Receipt Date: 20161222
  Transmission Date: 20170207
  Serious: Yes (Other)
  Sender: FDA-Public Use
  Company Number: PHHY2016BR160822

PATIENT
  Age: 57 Year
  Sex: Male
  Weight: 63 kg

DRUGS (4)
  1. AFINITOR [Suspect]
     Active Substance: EVEROLIMUS
     Indication: RENAL CANCER
     Dosage: 10 MG, QD (1 TABLET A DAY)
     Route: 048
     Dates: start: 20160715
  2. LEVOTHYROXINE. [Concomitant]
     Active Substance: LEVOTHYROXINE
     Indication: METABOLIC ABNORMALITY MANAGEMENT
     Dosage: 1 DF, QD
     Route: 048
  3. AFINITOR [Suspect]
     Active Substance: EVEROLIMUS
     Indication: PULMONARY MASS
  4. DEXAMETHASONE. [Concomitant]
     Active Substance: DEXAMETHASONE
     Indication: NONINFECTIVE ENCEPHALITIS
     Dosage: 4 MG, QID (1 TABLET EVERY 6 HOURS)
     Route: 048
     Dates: start: 201610

REACTIONS (6)
  - Intracranial mass [Unknown]
  - Blood glucose increased [Unknown]
  - Muscular weakness [Recovering/Resolving]
  - Weight decreased [Not Recovered/Not Resolved]
  - Asthenia [Recovering/Resolving]
  - Pulmonary mass [Unknown]

NARRATIVE: CASE EVENT DATE: 201610
